FAERS Safety Report 9326271 (Version 1)
Quarter: 2013Q2

REPORT INFORMATION
  Report Type: Spontaneous
  Country: IN (occurrence: None)
  Receive Date: 20130530
  Receipt Date: 20130530
  Transmission Date: 20140414
  Serious: Yes (Other)
  Sender: FDA-Public Use
  Company Number: VAL_02523_2013

PATIENT
  Age: 32 Year
  Sex: Female

DRUGS (3)
  1. CARBAMAZEPINE [Suspect]
     Indication: NEURALGIA
     Dosage: 6 DAYS UNTIL NOT CONTINUING (UNKNOWN UNTIL NOT CONTINUING)
     Route: 048
  2. CARBAMAZEPINE [Suspect]
     Indication: POLYNEUROPATHY
     Dosage: 6 DAYS UNTIL NOT CONTINUING (UNKNOWN UNTIL NOT CONTINUING)
     Route: 048
  3. THYROXIN [Concomitant]

REACTIONS (6)
  - Hyponatraemia [None]
  - Dyspnoea [None]
  - Lung infiltration [None]
  - Tachypnoea [None]
  - Cyanosis [None]
  - Liver function test abnormal [None]
